FAERS Safety Report 6929403-8 (Version None)
Quarter: 2010Q3

REPORT INFORMATION
  Report Type: 
  Country: None (occurrence: None)
  Receive Date: 20100818
  Receipt Date: 20100810
  Transmission Date: 20110219
  Serious: Yes (Hospitalization, Other)
  Sender: FDA-Public Use
  Company Number: US-BIOGENIDEC-2009BI002936

PATIENT
  Age: 65 Year
  Sex: Female

DRUGS (2)
  1. AVONEX [Suspect]
     Indication: MULTIPLE SCLEROSIS
     Route: 030
     Dates: start: 20040809, end: 20100310
  2. AVONEX [Suspect]
     Route: 030
     Dates: start: 20100501

REACTIONS (2)
  - NEOPLASM MALIGNANT [None]
  - VULVAL CANCER STAGE I [None]
